FAERS Safety Report 16368458 (Version 4)
Quarter: 2019Q4

REPORT INFORMATION
  Report Type: Report from Study
  Country: US (occurrence: US)
  Receive Date: 20190529
  Receipt Date: 20191213
  Transmission Date: 20200122
  Serious: Yes (Hospitalization, Other)
  Sender: FDA-Public Use
  Company Number: US-PFIZER INC-2019221453

PATIENT
  Age: 72 Year
  Sex: Male
  Weight: 110 kg

DRUGS (35)
  1. RITUXIMAB. [Suspect]
     Active Substance: RITUXIMAB
     Dosage: REGIMEN B: 375 MG/M2 IV ON DAY 2 AND 8 OF CYCLES 2 AND 4
     Route: 042
  2. BLINATUMOMAB [Suspect]
     Active Substance: BLINATUMOMAB
     Dosage: REGIMEN C: 28UG/DAY CONTINUOUS INFUSION DAYS 1-4 (CYCLE 5 ONLY)
  3. HUMALOG [Concomitant]
     Active Substance: INSULIN LISPRO
  4. METHOTREXATE SODIUM. [Suspect]
     Active Substance: METHOTREXATE SODIUM
     Dosage: REGIMEN B: 50 MG/M2 IV OVER 2HRS ON DAY 1 THEN
     Route: 042
  5. VINCRISTINE SULFATE. [Suspect]
     Active Substance: VINCRISTINE SULFATE
     Dosage: REGIMEN M: 2 MG IV MONTHLY FOR 1 YEAR
     Route: 042
  6. BLINATUMOMAB [Suspect]
     Active Substance: BLINATUMOMAB
     Dosage: REGIMEN C:  9UG/DAY CONTINUOUS INFUSION DAYS 1-4 (CYCLE 5 ONLY)
  7. ULTRAM [Concomitant]
     Active Substance: TRAMADOL HYDROCHLORIDE
  8. VINCRISTINE SULFATE. [Suspect]
     Active Substance: VINCRISTINE SULFATE
     Dosage: REGIMEN A: 2MG IV DAY 1 AND DAY 8 (APPROXIMATE)
     Route: 042
  9. INOTUZUMAB OZOGAMICIN [Suspect]
     Active Substance: INOTUZUMAB OZOGAMICIN
     Indication: ACUTE LYMPHOCYTIC LEUKAEMIA
     Dosage: 1 MG/M2, DAY 2 AND DAY 8 OF SPECIFIED CYCLES
     Route: 042
     Dates: start: 20160328, end: 20160612
  10. MERCAPTOPURINE. [Suspect]
     Active Substance: MERCAPTOPURINE
     Indication: ACUTE LYMPHOCYTIC LEUKAEMIA
     Dosage: 25MG/50MG ALTERNATING, QD WITH HIGHER DOSE ON MWF
     Route: 048
     Dates: start: 20161201, end: 20190316
  11. CYCLOPHOSPHAMIDE. [Suspect]
     Active Substance: CYCLOPHOSPHAMIDE
     Dosage: 150 MG/M2, IV ON DAYS 1 AND 3 OF INDUCTION/CONSOLIDATION CYCLES
     Route: 042
     Dates: start: 20160326, end: 20160918
  12. REQUIP [Concomitant]
     Active Substance: ROPINIROLE HYDROCHLORIDE
  13. CYTARABINE. [Suspect]
     Active Substance: CYTARABINE
     Dosage: REGIMEN B: 0.5 G/M2 IV OVER 3 HOURS TWICE A DAY X 4 DOSES ON DAYS 2 AND 3
     Route: 042
  14. RITUXIMAB. [Suspect]
     Active Substance: RITUXIMAB
     Indication: ACUTE LYMPHOCYTIC LEUKAEMIA
     Dosage: 375 MG/M2, DAYS 1 AND 8 OF SPECIFIED CYCLES
     Route: 042
     Dates: start: 20160327, end: 20160615
  15. CYCLOPHOSPHAMIDE. [Suspect]
     Active Substance: CYCLOPHOSPHAMIDE
     Dosage: REGIMEN A: 150MG/M2 IV OVER 3 HOURS TWICE A DAY ON DAYS 1-3
     Route: 042
  16. RESTORIL [CHLORMEZANONE] [Concomitant]
     Active Substance: CHLORMEZANONE
  17. ACTIGALL [Concomitant]
     Active Substance: URSODIOL
  18. METHOTREXATE SODIUM. [Suspect]
     Active Substance: METHOTREXATE SODIUM
     Dosage: REGIMEN M: 10 MG/M2 PO WEEKLY
     Route: 048
  19. MERCAPTOPURINE. [Suspect]
     Active Substance: MERCAPTOPURINE
     Dosage: REGIMEN M: 50 MG PO BID
     Route: 048
  20. PEGFILGRASTIM [Suspect]
     Active Substance: PEGFILGRASTIM
     Dosage: REGIMEN B: 6 MG SUBQ ( OR FILGRASTIM 5-10 MCG/KG DAILY
     Route: 058
  21. PRINZIDE [Concomitant]
     Active Substance: HYDROCHLOROTHIAZIDE\LISINOPRIL
  22. PRILOSEC [Concomitant]
     Active Substance: OMEPRAZOLE MAGNESIUM
  23. VALTREX [Concomitant]
     Active Substance: VALACYCLOVIR HYDROCHLORIDE
  24. METHOTREXATE SODIUM. [Suspect]
     Active Substance: METHOTREXATE SODIUM
     Dosage: REGIMEN B: 200 MG/M2 CONTINUOUS INFUSION OVER 22 HOURS ON DAY 1
  25. RITUXIMAB. [Suspect]
     Active Substance: RITUXIMAB
     Dosage: REGIMEN A: 375MG/M2 IV ON DAY 2 AND DAY 8 OF CYCLES 1 AND 3
     Route: 042
  26. PEGFILGRASTIM [Suspect]
     Active Substance: PEGFILGRASTIM
     Dosage: REGIMEN A: 6 MG SUBQ (OR FILGRASTIM 5-10 MCG/KG DAILY) ON DAY4
     Route: 058
  27. GLUCOPHAGE [Concomitant]
     Active Substance: METFORMIN HYDROCHLORIDE
  28. METHOTREXATE SODIUM. [Suspect]
     Active Substance: METHOTREXATE SODIUM
     Indication: ACUTE LYMPHOCYTIC LEUKAEMIA
     Dosage: 17.5 MG, WEEKLY
     Route: 048
     Dates: start: 20161201, end: 20190316
  29. MESNA. [Suspect]
     Active Substance: MESNA
     Dosage: REGIMEN A: 300MG/M2 IV DAILY OVER 24 HOURS FOR 3 DAYS ON DAYS 1-3
     Route: 042
  30. PREDNISONE. [Suspect]
     Active Substance: PREDNISONE
     Dosage: REGIMEN M: 50 MG PO DAILY X 5 EVERY MONTH FOR 1 YEAR
     Route: 048
  31. GLUCOTROL [Concomitant]
     Active Substance: GLIPIZIDE
  32. BLINATUMOMAB [Suspect]
     Active Substance: BLINATUMOMAB
     Dosage: REGIMEN C: 28UG/DAY CONTINUOUS INFUSION DAYS 1-29 (CYCLES 6, 11 AND 12)
  33. DEXAMETHASONE. [Suspect]
     Active Substance: DEXAMETHASONE
     Dosage: REGIMEN A: 20MG IV DAILY FOR 4 DAYS ON DAYS 1-4 AND DAYS 11-14 (APPROXIMATE)
     Route: 042
  34. NEURONTIN [Concomitant]
     Active Substance: GABAPENTIN
  35. NOVOLIN [Concomitant]
     Active Substance: INSULIN HUMAN

REACTIONS (2)
  - Myelodysplastic syndrome [Recovered/Resolved]
  - Second primary malignancy [Recovered/Resolved]

NARRATIVE: CASE EVENT DATE: 20190425
